FAERS Safety Report 15183176 (Version 1)
Quarter: 2018Q3

REPORT INFORMATION
  Report Type: Spontaneous
  Country: IE (occurrence: IE)
  Receive Date: 20180723
  Receipt Date: 20180723
  Transmission Date: 20181010
  Serious: Yes (Life-Threatening)
  Sender: FDA-Public Use
  Company Number: IE-TEVA-2018-IE-930911

PATIENT
  Age: 58 Year
  Sex: Male

DRUGS (1)
  1. CO?AMOXICLAV [Suspect]
     Active Substance: AMOXICILLIN\CLAVULANATE POTASSIUM
     Indication: LOWER RESPIRATORY TRACT INFECTION
     Dosage: 1.2G THREE TIMES DAILY?PATIENT HAD 1 DOSE
     Route: 042
     Dates: start: 20180624, end: 20180624

REACTIONS (3)
  - Nausea [Unknown]
  - Vomiting [Unknown]
  - Bronchospasm [Unknown]

NARRATIVE: CASE EVENT DATE: 20180624
